FAERS Safety Report 5788565-9 (Version None)
Quarter: 2008Q2

REPORT INFORMATION
  Report Type: 
  Country: None (occurrence: None)
  Receive Date: 20080625
  Receipt Date: 20080625
  Transmission Date: 20081010
  Serious: Yes (Death)
  Sender: FDA-Public Use
  Company Number: None

PATIENT
  Age: 62 Year
  Sex: Female
  Weight: 85.4 kg

DRUGS (1)
  1. AVASTIN [Suspect]
     Indication: BREAST CANCER METASTATIC
     Dosage: 10MG/KG (845MG) Q2WKS IV TOTAL OF 13 DOSES
     Route: 042
     Dates: start: 20071121, end: 20080528

REACTIONS (1)
  - AORTIC DISSECTION [None]
